FAERS Safety Report 23998444 (Version 1)
Quarter: 2024Q2

REPORT INFORMATION
  Report Type: Spontaneous
  Country: IT (occurrence: IT)
  Receive Date: 20240621
  Receipt Date: 20240621
  Transmission Date: 20240716
  Serious: Yes (Death, Life-Threatening, Hospitalization)
  Sender: FDA-Public Use
  Company Number: IT-Long Grove-000055

PATIENT
  Age: 31 Year
  Sex: Male

DRUGS (3)
  1. METHADONE [Suspect]
     Active Substance: METHADONE HYDROCHLORIDE
     Indication: Drug dependence
  2. FLUBROMAZEPAM [Suspect]
     Active Substance: FLUBROMAZEPAM
  3. DIAZEPAM [Suspect]
     Active Substance: DIAZEPAM

REACTIONS (8)
  - Haemorrhage subcutaneous [Fatal]
  - Brain oedema [Fatal]
  - Lung hyperinflation [Fatal]
  - Left ventricular dilatation [Fatal]
  - Pulmonary haemorrhage [Fatal]
  - Respiratory depression [Fatal]
  - Completed suicide [Fatal]
  - Toxicity to various agents [Fatal]
